FAERS Safety Report 4353771-7 (Version None)
Quarter: 2004Q2

REPORT INFORMATION
  Report Type: 
  Country: None (occurrence: None)
  Receive Date: 20040430
  Receipt Date: 20030929
  Transmission Date: 20050107
  Serious: Yes (Hospitalization)
  Sender: FDA-Public Use
  Company Number: KDL049603

PATIENT
  Age: 58 Year
  Sex: Male
  Weight: 106.7 kg

DRUGS (1)
  1. EPOGEN [Suspect]
     Indication: ANAEMIA OF MALIGNANT DISEASE
     Dosage: 60000 U, SC
     Route: 058
     Dates: end: 20030627

REACTIONS (1)
  - CONVULSION [None]
